FAERS Safety Report 14575104 (Version 2)
Quarter: 2019Q1

REPORT INFORMATION
  Report Type: Spontaneous
  Country: US (occurrence: US)
  Receive Date: 20180227
  Receipt Date: 20190205
  Transmission Date: 20190417
  Serious: No
  Sender: FDA-Public Use
  Company Number: US-ROCHE-2022147

PATIENT
  Sex: Female

DRUGS (2)
  1. XOLAIR [Suspect]
     Active Substance: OMALIZUMAB
     Dosage: OMALIZUMAB FIRST TO EVERY 4 WEEKS, THEN TO EVERY 6 WEEKS
     Route: 058
  2. XOLAIR [Suspect]
     Active Substance: OMALIZUMAB
     Indication: PRODUCT USED FOR UNKNOWN INDICATION
     Dosage: OMALIZUMAB FIRST TO EVERY 4 WEEKS, THEN TO EVERY 6 WEEKS
     Route: 058

REACTIONS (1)
  - Pregnancy [Unknown]
